FAERS Safety Report 9331154 (Version 3)
Quarter: 2013Q3

REPORT INFORMATION
  Report Type: Spontaneous
  Country: AU (occurrence: AU)
  Receive Date: 20130605
  Receipt Date: 20130808
  Transmission Date: 20140515
  Serious: Yes (Death, Hospitalization, Other)
  Sender: FDA-Public Use
  Company Number: AU-B.I. PHARMACEUTICALS,INC./RIDGEFIELD-2013-AU-00670AU

PATIENT
  Age: 67 Year
  Sex: Female

DRUGS (24)
  1. PRADAXA [Suspect]
     Indication: CEREBROVASCULAR ACCIDENT PROPHYLAXIS
     Dosage: 300 MG
     Dates: start: 20110804
  2. PRADAXA [Suspect]
     Indication: ATRIAL FIBRILLATION
  3. ATROVENT [Concomitant]
     Dosage: 4 HOURLY PRN
     Route: 055
  4. VENTOLIN [Concomitant]
     Dosage: 4 HOURLY
     Route: 055
  5. SERETIDE [Concomitant]
     Dosage: 500 MCG
     Route: 055
  6. VENTOLIN [Concomitant]
     Dosage: 4 HOURLY
     Route: 055
  7. SPIRIVA [Concomitant]
     Dosage: 18 MCG
     Route: 055
  8. FAMVIR [Concomitant]
     Indication: HERPES SIMPLEX
     Dosage: 500 MG
     Route: 048
  9. FLUCONAZOLE [Concomitant]
     Indication: ORAL CANDIDIASIS
     Dosage: 100 MG
     Route: 048
  10. FRUSEMIDE [Concomitant]
     Dosage: 80 MG
     Route: 048
  11. KENALOG [Concomitant]
     Indication: APHTHOUS STOMATITIS
     Route: 061
  12. KENACOMB [Concomitant]
     Route: 061
  13. MAXOLON [Concomitant]
     Indication: NAUSEA
     Dosage: 1 6 HOURLY
     Route: 048
  14. METOPROLOL [Concomitant]
     Indication: HEART RATE IRREGULAR
     Dosage: 1/4 TWICE DAILY
     Route: 048
  15. NEXIUM [Concomitant]
     Indication: GASTROOESOPHAGEAL REFLUX DISEASE
     Dosage: 40 MG
     Route: 048
  16. NIZATIDINE [Concomitant]
     Indication: GASTROOESOPHAGEAL REFLUX DISEASE
     Dosage: 300 MG
     Route: 048
  17. PANADEINE FORTE [Concomitant]
     Indication: ANALGESIC THERAPY
     Dosage: 1-2 4 HOURLY
     Route: 048
  18. PANAMAX [Concomitant]
     Indication: ANALGESIC THERAPY
     Dosage: 2 4 HOURLY
     Route: 048
  19. PARIET [Concomitant]
     Indication: GASTROOESOPHAGEAL REFLUX DISEASE
     Dosage: 20 MG
     Route: 048
  20. RAMIPRIL [Concomitant]
     Indication: CARDIAC FAILURE
     Dosage: 2.5 MG
     Route: 048
  21. SPIRONOLACTONE [Concomitant]
     Indication: CARDIAC FAILURE
     Dosage: 50 MG
     Route: 048
  22. TEMAZEPAM [Concomitant]
     Indication: INSOMNIA
     Dosage: 1-2 NOCTE PRN
     Route: 048
  23. FUNGILIN [Concomitant]
     Indication: ORAL CANDIDIASIS
     Dosage: 40 MG
     Route: 048
  24. CAPECITABINE [Concomitant]

REACTIONS (18)
  - Pancreatic carcinoma metastatic [Fatal]
  - Duodenal obstruction [Unknown]
  - Multi-organ failure [Unknown]
  - Sepsis [Unknown]
  - Pleural effusion [Unknown]
  - Dyspepsia [Unknown]
  - Chest pain [Unknown]
  - Decreased appetite [Unknown]
  - Lethargy [Unknown]
  - Malaise [Unknown]
  - Vomiting [Unknown]
  - Gastrooesophageal reflux disease [Unknown]
  - Eructation [Unknown]
  - Hypotension [Unknown]
  - Tachycardia [Unknown]
  - Oesophagitis [Unknown]
  - Abdominal tenderness [Unknown]
  - Oedema [Unknown]
